FAERS Safety Report 13690847 (Version 2)
Quarter: 2017Q3

REPORT INFORMATION
  Report Type: Spontaneous
  Country: US (occurrence: US)
  Receive Date: 20170626
  Receipt Date: 20170928
  Transmission Date: 20171127
  Serious: No
  Sender: FDA-Public Use
  Company Number: US-CLOVIS ONCOLOGY-CLO-2017-000382

PATIENT
  Age: 82 Year
  Sex: Female

DRUGS (2)
  1. METOPROLOL. [Concomitant]
     Active Substance: METOPROLOL
     Indication: PRODUCT USED FOR UNKNOWN INDICATION
  2. RUBRACA [Suspect]
     Active Substance: RUCAPARIB CAMSYLATE
     Indication: OVARIAN CANCER
     Dosage: 600 MG, BID
     Route: 048
     Dates: start: 20170427, end: 2017

REACTIONS (14)
  - Weight increased [Unknown]
  - White blood cell count decreased [Unknown]
  - Drug ineffective [Unknown]
  - Muscle spasms [Unknown]
  - Paraesthesia [Unknown]
  - Abdominal pain upper [Unknown]
  - Increased appetite [Unknown]
  - Alopecia [Unknown]
  - Peripheral swelling [Unknown]
  - Temperature intolerance [Unknown]
  - Reflux gastritis [Unknown]
  - Flatulence [Unknown]
  - Dysgeusia [Unknown]
  - Fatigue [Unknown]

NARRATIVE: CASE EVENT DATE: 2017
